FAERS Safety Report 11554802 (Version 6)
Quarter: 2016Q2

REPORT INFORMATION
  Report Type: Spontaneous
  Country: US (occurrence: US)
  Receive Date: 20150925
  Receipt Date: 20160523
  Transmission Date: 20160815
  Serious: Yes (Other)
  Sender: FDA-Public Use
  Company Number: US-GILEAD-2015-0173783

PATIENT
  Sex: Female

DRUGS (5)
  1. RIBAVIRIN. [Suspect]
     Active Substance: RIBAVIRIN
     Dosage: 800 MG, UNK
     Route: 065
  2. VIEKIRA PAK [Suspect]
     Active Substance: DASABUVIR\OMBITASVIR\PARITAPREVIR\RITONAVIR
     Indication: HEPATITIS C
     Dosage: UNK
     Route: 048
  3. HARVONI [Suspect]
     Active Substance: LEDIPASVIR\SOFOSBUVIR
     Indication: HEPATITIS C
     Dosage: UNK
     Route: 065
  4. RIBAVIRIN. [Suspect]
     Active Substance: RIBAVIRIN
     Indication: HEPATITIS C
     Dosage: 1000 MG, UNK
     Route: 065
  5. INTERFERON [Suspect]
     Active Substance: INTERFERON
     Indication: HEPATITIS C
     Route: 065

REACTIONS (33)
  - Vomiting [Recovered/Resolved]
  - Sleep disorder [Recovered/Resolved]
  - Suicidal ideation [Unknown]
  - Memory impairment [Recovered/Resolved]
  - Depression [Recovered/Resolved]
  - Personality change [Unknown]
  - Tremor [Unknown]
  - Anxiety [Unknown]
  - Drug ineffective [Unknown]
  - Fatigue [Recovering/Resolving]
  - Asthenia [Recovering/Resolving]
  - Confusional state [Recovered/Resolved]
  - Joint swelling [Unknown]
  - Nausea [Recovered/Resolved]
  - Stress [Unknown]
  - Pain [Not Recovered/Not Resolved]
  - Arthralgia [Unknown]
  - Unevaluable event [Unknown]
  - Bedridden [Recovered/Resolved]
  - Asthenia [Unknown]
  - Feeling abnormal [Recovered/Resolved]
  - Pain in extremity [Unknown]
  - Skin burning sensation [Not Recovered/Not Resolved]
  - Abdominal pain [Unknown]
  - Arthropathy [Unknown]
  - Decreased appetite [Recovered/Resolved]
  - Dizziness [Unknown]
  - Fall [Unknown]
  - Joint stiffness [Unknown]
  - Hepatitis C [Recovering/Resolving]
  - Tooth injury [Unknown]
  - Coordination abnormal [Unknown]
  - Weight increased [Recovered/Resolved]
